FAERS Safety Report 24581544 (Version 1)
Quarter: 2024Q4

REPORT INFORMATION
  Report Type: Spontaneous
  Country: SE (occurrence: SE)
  Receive Date: 20241105
  Receipt Date: 20241105
  Transmission Date: 20250115
  Serious: Yes (Death)
  Sender: BAYER HEALTHCARE PHARMACEUTICALS INC.
  Company Number: None

PATIENT
  Age: 68 Year
  Sex: Male
  Weight: 83 kg

DRUGS (14)
  1. XOFIGO [Suspect]
     Active Substance: RADIUM RA-223 DICHLORIDE
     Indication: Prostate cancer
     Dosage: 1100 KBQ/ML, ACCORDING TO SPECIAL PRESCRIPTION VIA ONCOLOGY CLINIC DOSE: SECOND DOSE
     Route: 042
     Dates: start: 20240918, end: 20240918
  2. XOFIGO [Suspect]
     Active Substance: RADIUM RA-223 DICHLORIDE
     Indication: Prostate cancer
     Dosage: 1100 KBQ/ML, ACCORDING TO SPECIAL PRESCRIPTION VIA ONCOLOGY CLINIC DOSE: SECOND DOSE
     Route: 042
     Dates: start: 20240928, end: 20240928
  3. AMLODIPINE [Concomitant]
     Active Substance: AMLODIPINE BESYLATE
     Dosage: 1X1
     Route: 048
  4. AMLODIPINE [Concomitant]
     Active Substance: AMLODIPINE BESYLATE
     Dosage: UNK
     Route: 048
  5. ENANTONE MONATS-DEPOT [Concomitant]
     Active Substance: LEUPROLIDE ACETATE
     Dosage: ONCE EVERY SIX MONTHS, POWDER AND LIQUID FOR INJECTION LIQUID, SUSPENSION IN PRE-FILLED SYRINGE
     Route: 058
  6. METOPROLOL [Concomitant]
     Active Substance: METOPROLOL
     Dosage: 1X1
     Route: 048
  7. METOPROLOL [Concomitant]
     Active Substance: METOPROLOL
     Dosage: UNK
     Route: 048
  8. METOPROLOL [Concomitant]
     Active Substance: METOPROLOL
     Dosage: UNK
     Route: 048
  9. Enalapril accord [Concomitant]
     Dosage: 1X1
     Route: 048
  10. Enalapril accord [Concomitant]
     Dosage: UNK
     Route: 048
  11. SPIRONOLACTONE [Concomitant]
     Active Substance: SPIRONOLACTONE
     Dosage: 1X1
     Route: 048
  12. CALCIUM CARBONATE\CHOLECALCIFEROL [Concomitant]
     Active Substance: CALCIUM CARBONATE\CHOLECALCIFEROL
     Dosage: 2X1, 500 MG/400 IU, 400 [IU] (U)
     Route: 048
     Dates: start: 20240101
  13. CALCIUM CARBONATE\CHOLECALCIFEROL [Concomitant]
     Active Substance: CALCIUM CARBONATE\CHOLECALCIFEROL
     Dosage: UNK
     Route: 048
  14. CALCIUM CARBONATE\CHOLECALCIFEROL [Concomitant]
     Active Substance: CALCIUM CARBONATE\CHOLECALCIFEROL
     Dosage: UNK
     Route: 048

REACTIONS (3)
  - Ischaemic stroke [Fatal]
  - Cerebral haemorrhage [Fatal]
  - Pancytopenia [Fatal]

NARRATIVE: CASE EVENT DATE: 20240926
